FAERS Safety Report 21872955 (Version 2)
Quarter: 2023Q1

REPORT INFORMATION
  Report Type: Spontaneous
  Country: BR (occurrence: BR)
  Receive Date: 20230117
  Receipt Date: 20230120
  Transmission Date: 20230417
  Serious: Yes (Other)
  Sender: FDA-Public Use
  Company Number: BR-MYLANLABS-2023M1004009

PATIENT
  Sex: Female
  Weight: 61 kg

DRUGS (2)
  1. ALPRAZOLAM [Suspect]
     Active Substance: ALPRAZOLAM
     Indication: Panic disorder
     Dosage: 1 MILLIGRAM, QD, (1MG (1 TABLET), ONCE A DAY)
     Route: 048
     Dates: start: 1998
  2. ALPRAZOLAM [Suspect]
     Active Substance: ALPRAZOLAM
     Dosage: 0.5 MILLIGRAM, BID, 0.5MG IN THE MORNING AND 0.5MG IN THE AFTERNOON
     Route: 048

REACTIONS (5)
  - Dependence [Not Recovered/Not Resolved]
  - Anxiety [Unknown]
  - Blood cholesterol abnormal [Not Recovered/Not Resolved]
  - Off label use [Not Recovered/Not Resolved]
  - Incorrect product administration duration [Not Recovered/Not Resolved]

NARRATIVE: CASE EVENT DATE: 19980101
